FAERS Safety Report 8108744-5 (Version None)
Quarter: 2012Q1

REPORT INFORMATION
  Report Type: 
  Country: None (occurrence: None)
  Receive Date: 20120202
  Receipt Date: 20120126
  Transmission Date: 20120608
  Serious: Yes (Hospitalization)
  Sender: FDA-Public Use
  Company Number: PHHY2012DK006736

PATIENT
  Sex: Male
  Weight: 70 kg

DRUGS (5)
  1. CHLORDIAZEPOXIDE [Suspect]
     Indication: ABSTAINS FROM ALCOHOL
     Dosage: DOSIS: IALT 900 MG, STYRKE: 25 MG
     Route: 048
     Dates: start: 20120103
  2. THIAMINE HCL [Concomitant]
     Indication: WERNICKE'S ENCEPHALOPATHY
     Dates: start: 20120103
  3. B-COMBIN ST?RK ^SAD^ [Concomitant]
     Indication: WERNICKE'S ENCEPHALOPATHY
     Dates: start: 20120103
  4. HALOPERIDOL [Suspect]
     Indication: DELIRIUM
     Dosage: DOSIS: IALT 20 MG, STYRKE: 5 MG/ML
     Route: 042
     Dates: start: 20120103
  5. DIAZEPAM [Suspect]
     Indication: ABSTAINS FROM ALCOHOL
     Dosage: 100 MG, UNK
     Route: 048
     Dates: start: 20120103

REACTIONS (4)
  - PNEUMONIA HAEMOPHILUS [None]
  - RESPIRATORY FAILURE [None]
  - HYPERCAPNIA [None]
  - RESPIRATORY ACIDOSIS [None]
